FAERS Safety Report 9222394 (Version 1)
Quarter: 2013Q1

REPORT INFORMATION
  Report Type: Spontaneous
  Country: US (occurrence: None)
  Receive Date: 20120914
  Receipt Date: 20120914
  Transmission Date: 20140127
  Serious: Yes (Other)
  Sender: FDA-Public Use
  Company Number: JPI-P-016179

PATIENT
  Age: 43 Year
  Sex: Female
  Weight: 75.75 kg

DRUGS (5)
  1. XYREM (500 MILLIGRAM/ MILLILITERS, SOLUTION) (SODIUM OXYBATE) [Suspect]
     Indication: NARCOLEPSY
     Route: 048
     Dates: start: 20110622, end: 2011
  2. XYREM (500 MILLIGRAM/ MILLILITERS, SOLUTION) (SODIUM OXYBATE) [Suspect]
     Indication: SOMNOLENCE
     Route: 048
     Dates: start: 20110622, end: 2011
  3. XYREM (500 MILLIGRAM/ MILLILITERS, SOLUTION) (SODIUM OXYBATE) [Suspect]
     Indication: INSOMNIA
     Route: 048
     Dates: start: 20110622, end: 2011
  4. LEVOTHYROXINE [Concomitant]
  5. AMPHETAMINE AND DEXTROAMPHETAMINE [Concomitant]

REACTIONS (3)
  - Suicidal ideation [None]
  - Anxiety [None]
  - Depression [None]
